FAERS Safety Report 5455934-6 (Version None)
Quarter: 2007Q3

REPORT INFORMATION
  Report Type: 
  Country: None (occurrence: None)
  Receive Date: 20070914
  Receipt Date: 20070904
  Transmission Date: 20080115
  Serious: Yes (Other)
  Sender: FDA-Public Use
  Company Number: 237431K07USA

PATIENT
  Age: 60 Year
  Sex: Female
  Weight: 68.0396 kg

DRUGS (6)
  1. REBIF [Suspect]
     Indication: MULTIPLE SCLEROSIS
     Dosage: 3 IN 1 WEEKS, SUBCUTANEOUS; 8.8 MCG, 3 IN 1 WEEKS, SUBCUTANEOUS
     Route: 058
     Dates: start: 20060602, end: 20070501
  2. REBIF [Suspect]
     Indication: MULTIPLE SCLEROSIS
     Dosage: 3 IN 1 WEEKS, SUBCUTANEOUS; 8.8 MCG, 3 IN 1 WEEKS, SUBCUTANEOUS
     Route: 058
     Dates: start: 20070805
  3. TYSABRI [Suspect]
     Dosage: ONCE
     Dates: start: 20070608, end: 20070608
  4. TYSABRI [Suspect]
     Dosage: ONCE
     Dates: start: 20070706, end: 20070706
  5. TYSABRI [Suspect]
     Dosage: ONCE
     Dates: start: 20070803, end: 20070803
  6. SYNTHROID [Concomitant]

REACTIONS (2)
  - BLOOD CHOLESTEROL INCREASED [None]
  - CHRONIC LYMPHOCYTIC LEUKAEMIA [None]
